FAERS Safety Report 10265305 (Version 3)
Quarter: 2014Q3

REPORT INFORMATION
  Report Type: Spontaneous
  Country: DZ (occurrence: DZ)
  Receive Date: 20140627
  Receipt Date: 20140820
  Transmission Date: 20150326
  Serious: Yes (Death)
  Sender: FDA-Public Use
  Company Number: DZ-SA-2014SA080993

PATIENT
  Age: 49 Year
  Sex: Female

DRUGS (6)
  1. TAXOTERE [Suspect]
     Active Substance: DOCETAXEL
     Indication: SARCOMA UTERUS
     Route: 065
     Dates: start: 2013, end: 201401
  2. TAXOTERE [Suspect]
     Active Substance: DOCETAXEL
     Indication: SARCOMA UTERUS
     Route: 042
     Dates: start: 20140610, end: 20140615
  3. GEMZAR [Suspect]
     Active Substance: GEMCITABINE HYDROCHLORIDE
     Indication: SARCOMA UTERUS
     Route: 065
     Dates: start: 2013, end: 20140610
  4. TAXOTERE [Suspect]
     Active Substance: DOCETAXEL
     Indication: SARCOMA UTERUS
     Route: 042
     Dates: start: 20140610, end: 20140615
  5. SOLUPRED [Concomitant]
     Active Substance: PREDNISOLONE
     Route: 048
     Dates: start: 20140609, end: 20140614
  6. SOLU-MEDROL [Concomitant]
     Active Substance: METHYLPREDNISOLONE SODIUM SUCCINATE
     Route: 042
     Dates: start: 20140610, end: 20140610

REACTIONS (5)
  - Myocardial infarction [Fatal]
  - Dyspnoea [Fatal]
  - Pain [Fatal]
  - General physical health deterioration [Fatal]
  - Unevaluable event [Unknown]

NARRATIVE: CASE EVENT DATE: 20140610
